FAERS Safety Report 9889692 (Version 3)
Quarter: 2014Q1

REPORT INFORMATION
  Report Type: Spontaneous
  Country: CN (occurrence: CN)
  Receive Date: 20140211
  Receipt Date: 20140317
  Transmission Date: 20141002
  Serious: Yes (Death)
  Sender: FDA-Public Use
  Company Number: CN-PFIZER INC-2014037240

PATIENT
  Age: 50 Year
  Sex: Male

DRUGS (2)
  1. TYGACIL [Suspect]
     Indication: PNEUMONIA
     Dosage: UNK
     Dates: start: 20140127
  2. CEFOPERAZONE/TAZOBACTAM [Concomitant]

REACTIONS (2)
  - Cardio-respiratory arrest [Fatal]
  - Dyspnoea [Fatal]
